FAERS Safety Report 10513826 (Version 2)
Quarter: 2014Q4

REPORT INFORMATION
  Report Type: Spontaneous
  Country: CA (occurrence: CA)
  Receive Date: 20141013
  Receipt Date: 20141015
  Transmission Date: 20150528
  Serious: Yes (Hospitalization, Disabling, Other)
  Sender: FDA-Public Use
  Company Number: CA-PFIZER INC-2014280146

PATIENT
  Sex: Female

DRUGS (2)
  1. MORPHINE SULFATE. [Suspect]
     Active Substance: MORPHINE SULFATE
     Dosage: UNK
  2. XALKORI [Suspect]
     Active Substance: CRIZOTINIB
     Indication: NEOPLASM MALIGNANT
     Dosage: 2 DF, DAILY

REACTIONS (7)
  - Deep vein thrombosis [Unknown]
  - Neoplasm malignant [Unknown]
  - Disease progression [Unknown]
  - Hepatomegaly [Unknown]
  - Gait disturbance [Unknown]
  - Abdominal distension [Unknown]
  - Pain [Unknown]
